FAERS Safety Report 7451095-2 (Version None)
Quarter: 2011Q2

REPORT INFORMATION
  Report Type: 
  Country: None (occurrence: None)
  Receive Date: 20110422
  Receipt Date: 20110414
  Transmission Date: 20111010
  Serious: Yes (Other)
  Sender: FDA-Public Use
  Company Number: 20109523

PATIENT
  Sex: Female

DRUGS (1)
  1. LIORESAL [Suspect]
     Indication: MUSCLE SPASTICITY
     Dosage: DAILY, INTRATHECAL
     Route: 037

REACTIONS (6)
  - NEURALGIA [None]
  - DEVICE BREAKAGE [None]
  - DEVICE LEAKAGE [None]
  - CONDITION AGGRAVATED [None]
  - MUSCLE SPASTICITY [None]
  - HEADACHE [None]
